FAERS Safety Report 6277302-X (Version None)
Quarter: 2009Q3

REPORT INFORMATION
  Report Type: 
  Country: None (occurrence: None)
  Receive Date: 20090722
  Receipt Date: 20090325
  Transmission Date: 20100115
  Serious: No
  Sender: FDA-Public Use
  Company Number: US-BRISTOL-MYERS SQUIBB COMPANY-14560593

PATIENT
  Age: 58 Year
  Sex: Female
  Weight: 97 kg

DRUGS (8)
  1. COUMADIN [Suspect]
     Indication: ATRIAL FIBRILLATION
     Dosage: DOSE RANGED FROM 5 MG TO 15MG.01MAR09 + 02MAR09 RECEIVED 15MG. 09MAR09-12MAR09 RECEIVED 10 MG.
     Dates: start: 20090224
  2. COREG [Concomitant]
  3. DIGOXIN [Concomitant]
  4. LAMICTAL [Concomitant]
  5. IMODIUM [Concomitant]
  6. MULTI-VITAMIN [Concomitant]
  7. RISPERDAL [Concomitant]
  8. HEPARIN [Concomitant]

REACTIONS (1)
  - INTERNATIONAL NORMALISED RATIO DECREASED [None]
